FAERS Safety Report 6501550-4 (Version None)
Quarter: 2009Q4

REPORT INFORMATION
  Report Type: 
  Country: None (occurrence: None)
  Receive Date: 20091216
  Receipt Date: 20091209
  Transmission Date: 20100525
  Serious: Yes (Hospitalization)
  Sender: FDA-Public Use
  Company Number: B0615588A

PATIENT
  Sex: Female
  Weight: 58 kg

DRUGS (6)
  1. WELLBUTRIN SR [Suspect]
     Indication: DEPRESSION
     Dosage: 150MG PER DAY
     Route: 048
     Dates: start: 20030813, end: 20031001
  2. MADOPAR [Concomitant]
     Dates: start: 20030221
  3. ALPRAZOLAM [Concomitant]
     Dates: start: 20030221
  4. BROMOCRIPTINE [Concomitant]
     Dates: start: 20000211
  5. DOMPERIDONE [Concomitant]
     Dates: start: 20000222
  6. AMANTADINE [Concomitant]
     Dates: start: 20000211

REACTIONS (1)
  - PARKINSONISM [None]
